FAERS Safety Report 4997421-5 (Version None)
Quarter: 2006Q2

REPORT INFORMATION
  Report Type: 
  Country: None (occurrence: None)
  Receive Date: 20060509
  Receipt Date: 20050829
  Transmission Date: 20061013
  Serious: Yes (Hospitalization)
  Sender: FDA-Public Use
  Company Number: US-MERCK-0508USA04635

PATIENT
  Age: 61 Year
  Sex: Male
  Weight: 108 kg

DRUGS (19)
  1. VIOXX [Suspect]
     Indication: ARTHRITIS
     Route: 048
     Dates: start: 20001001, end: 20040901
  2. VIOXX [Suspect]
     Route: 048
     Dates: start: 20001001, end: 20040901
  3. ASPIRIN [Concomitant]
     Route: 065
  4. VICODIN [Concomitant]
     Route: 065
  5. VERAPAMIL [Concomitant]
     Route: 065
  6. LANOXIN [Concomitant]
     Route: 065
  7. PRILOSEC [Concomitant]
     Route: 065
  8. LASIX [Concomitant]
     Route: 065
  9. QUININE [Concomitant]
     Route: 065
  10. POTASSIUM (UNSPECIFIED) [Concomitant]
     Route: 065
  11. CLARITIN [Concomitant]
     Route: 065
  12. FLEXERIL [Concomitant]
     Route: 065
  13. ATIVAN [Concomitant]
     Route: 065
  14. LIPITOR [Concomitant]
     Route: 065
  15. ADVAIR DISKUS 100/50 [Concomitant]
     Route: 065
  16. PAXIL [Concomitant]
     Route: 065
  17. COUMADIN [Concomitant]
     Route: 065
  18. ZANAFLEX [Concomitant]
     Route: 065
  19. COMBIVENT [Concomitant]
     Route: 065

REACTIONS (6)
  - CARDIAC DISORDER [None]
  - CARDIAC PACEMAKER INSERTION [None]
  - CEREBROVASCULAR ACCIDENT [None]
  - DENTAL OPERATION [None]
  - INJURY [None]
  - UNDERDOSE [None]
